FAERS Safety Report 8804024 (Version 3)
Quarter: 2013Q1

REPORT INFORMATION
  Report Type: Spontaneous
  Country: US (occurrence: US)
  Receive Date: 20120924
  Receipt Date: 20130304
  Transmission Date: 20140127
  Serious: Yes (Other)
  Sender: FDA-Public Use
  Company Number: US-JNJFOC-20120905906

PATIENT
  Sex: Male
  Weight: 77.11 kg

DRUGS (2)
  1. HALDOL [Suspect]
     Indication: SCHIZOPHRENIA, PARANOID TYPE
     Route: 030
  2. UNKNOWN [Suspect]
     Indication: PRODUCT USED FOR UNKNOWN INDICATION
     Route: 065

REACTIONS (12)
  - Nervous system disorder [Recovered/Resolved]
  - Speech disorder [Recovered/Resolved]
  - Tongue disorder [Recovered/Resolved]
  - Muscle twitching [Recovered/Resolved]
  - Protrusion tongue [Recovered/Resolved]
  - Limb discomfort [Recovered/Resolved]
  - Torticollis [Unknown]
  - Myalgia [Unknown]
  - Musculoskeletal stiffness [Unknown]
  - Muscle twitching [Unknown]
  - Dizziness [Unknown]
  - Vertigo [Unknown]
